FAERS Safety Report 9240445 (Version 3)
Quarter: 2013Q2

REPORT INFORMATION
  Report Type: Spontaneous
  Country: US (occurrence: None)
  Receive Date: 20130417
  Receipt Date: 20130502
  Transmission Date: 20140414
  Serious: Yes (Other)
  Sender: FDA-Public Use
  Company Number: AUR-APL-2013-03101

PATIENT
  Age: 27 Year
  Sex: Male

DRUGS (1)
  1. LISINOPRIL (LISINOPRIL) [Suspect]
     Indication: HYPERTENSION

REACTIONS (8)
  - Henoch-Schonlein purpura nephritis [None]
  - Haematuria [None]
  - IgA nephropathy [None]
  - Product substitution issue [None]
  - Abdominal pain [None]
  - Headache [None]
  - Chromaturia [None]
  - Oedema peripheral [None]
